FAERS Safety Report 24303525 (Version 4)
Quarter: 2025Q1

REPORT INFORMATION
  Report Type: Spontaneous
  Country: GR (occurrence: GR)
  Receive Date: 20240910
  Receipt Date: 20250207
  Transmission Date: 20250409
  Serious: No
  Sender: PFIZER
  Company Number: GR-PFIZER INC-PV202400115259

PATIENT
  Age: 9 Year
  Sex: Male
  Weight: 20 kg

DRUGS (1)
  1. GENOTROPIN [Suspect]
     Active Substance: SOMATROPIN
     Indication: Hypopituitarism
     Dosage: 5.5 MG, WEEKLY
     Route: 058
     Dates: start: 202401

REACTIONS (2)
  - Device breakage [Unknown]
  - Device material issue [Unknown]
